FAERS Safety Report 20497306 (Version 2)
Quarter: 2022Q1

REPORT INFORMATION
  Report Type: Spontaneous
  Country: US (occurrence: US)
  Receive Date: 20220221
  Receipt Date: 20220225
  Transmission Date: 20220423
  Serious: Yes (Other)
  Sender: FDA-Public Use
  Company Number: US-BRISTOL-MYERS SQUIBB COMPANY-BMS-2022-022853

PATIENT
  Age: 78 Year
  Weight: 102.3 kg

DRUGS (1)
  1. OPDIVO [Suspect]
     Active Substance: NIVOLUMAB
     Indication: Renal cell carcinoma
     Dosage: 300 MILLIGRAM
     Route: 042
     Dates: start: 20220211

REACTIONS (2)
  - Loss of consciousness [Unknown]
  - Prescribed underdose [Unknown]

NARRATIVE: CASE EVENT DATE: 20220211
